FAERS Safety Report 7875551-8 (Version None)
Quarter: 2011Q4

REPORT INFORMATION
  Report Type: 
  Country: None (occurrence: None)
  Receive Date: 20111031
  Receipt Date: 20111021
  Transmission Date: 20120403
  Serious: Yes (Other)
  Sender: FDA-Public Use
  Company Number: US-BAYER-2011-103025

PATIENT
  Sex: Male
  Weight: 83 kg

DRUGS (1)
  1. ALKA-SELTZER PLUS COLD + COUGH [Suspect]
     Indication: ESCHERICHIA INFECTION
     Dosage: PACKAGE SIZE: 20S
     Route: 048
     Dates: start: 20070101, end: 20100101

REACTIONS (1)
  - ESCHERICHIA INFECTION [None]
